FAERS Safety Report 6468973-3 (Version None)
Quarter: 2009Q4

REPORT INFORMATION
  Report Type: 
  Country: None (occurrence: None)
  Receive Date: 20091119
  Receipt Date: 20090825
  Transmission Date: 20100525
  Serious: No
  Sender: FDA-Public Use
  Company Number: WAES 0908USA04449

PATIENT
  Sex: Female

DRUGS (2)
  1. JANUVIA [Suspect]
     Dosage: 100 MG/DAILY/PO
     Route: 048
     Dates: start: 20080401
  2. INSULIN [Concomitant]

REACTIONS (3)
  - HYPOAESTHESIA ORAL [None]
  - LIP PAIN [None]
  - ORAL PAIN [None]
